FAERS Safety Report 7164056-8 (Version None)
Quarter: 2010Q4

REPORT INFORMATION
  Report Type: 
  Country: None (occurrence: None)
  Receive Date: 20101215
  Receipt Date: 20101213
  Transmission Date: 20110411
  Serious: Yes (Hospitalization)
  Sender: FDA-Public Use
  Company Number: ZA-PFIZER INC-2010171004

PATIENT
  Age: 58 Year
  Sex: Male

DRUGS (3)
  1. CELEBREX [Suspect]
     Dosage: 200 MG, 1X/DAY, MORNING
     Route: 048
  2. DISPRIN [Concomitant]
     Dosage: 1/2 DAILY
     Route: 048
  3. XANOR [Concomitant]
     Dosage: UNK
     Route: 048

REACTIONS (1)
  - STENT MALFUNCTION [None]
